FAERS Safety Report 4616031-2 (Version None)
Quarter: 2005Q1

REPORT INFORMATION
  Report Type: 
  Country: None (occurrence: None)
  Receive Date: 20050321
  Receipt Date: 20050308
  Transmission Date: 20050727
  Serious: Yes (Hospitalization)
  Sender: FDA-Public Use
  Company Number: 2005036607

PATIENT
  Sex: Female

DRUGS (2)
  1. GEODON [Suspect]
     Indication: OBSESSIVE-COMPULSIVE DISORDER
     Dosage: 40 MG (40 MG, 1 IN 1 D), ORAL
     Route: 048
     Dates: start: 20040101
  2. PROMETHAZINE [Concomitant]

REACTIONS (3)
  - DYSPNOEA [None]
  - PERIPHERAL COLDNESS [None]
  - TREMOR [None]
